FAERS Safety Report 10017223 (Version 2)
Quarter: 2014Q1

REPORT INFORMATION
  Report Type: Spontaneous
  Country: NL (occurrence: NL)
  Receive Date: 20140318
  Receipt Date: 20140328
  Transmission Date: 20141002
  Serious: Yes (Hospitalization)
  Sender: FDA-Public Use
  Company Number: NL-TEVA-468745ISR

PATIENT
  Age: 53 Year
  Sex: Male
  Weight: 98 kg

DRUGS (4)
  1. CARBAMAZEPINE [Suspect]
     Indication: EPILEPSY
     Dosage: 1200 MILLIGRAM DAILY;
     Route: 065
  2. RIVAROXABAN [Interacting]
     Indication: THROMBOSIS PROPHYLAXIS
     Dosage: 10 MILLIGRAM DAILY;
     Route: 065
  3. CLOBAZAM [Concomitant]
     Indication: EPILEPSY
     Dosage: 20 MILLIGRAM DAILY;
     Route: 065
  4. DALTEPARIN SODIUM [Concomitant]
     Indication: THROMBOSIS PROPHYLAXIS
     Dosage: 5000 IU (INTERNATIONAL UNIT) DAILY;
     Route: 065

REACTIONS (2)
  - Pulmonary embolism [Unknown]
  - Drug interaction [Unknown]
